FAERS Safety Report 16700902 (Version 1)
Quarter: 2019Q3

REPORT INFORMATION
  Report Type: Spontaneous
  Country: US (occurrence: US)
  Receive Date: 20190628
  Receipt Date: 20190628
  Transmission Date: 20191004
  Serious: No
  Sender: FDA-Public Use
  Company Number: None

PATIENT

DRUGS (1)
  1. FLUWAR ANTIBACTERIAL GEL COMPRISED OF BENZALKONIUM CHLORIDE [Suspect]
     Active Substance: BENZALKONIUM CHLORIDE

REACTIONS (2)
  - Product complaint [None]
  - Packaging design issue [None]

NARRATIVE: CASE EVENT DATE: 20180205
